FAERS Safety Report 25320372 (Version 1)
Quarter: 2025Q2

REPORT INFORMATION
  Report Type: Spontaneous
  Country: US (occurrence: US)
  Receive Date: 20250515
  Receipt Date: 20250515
  Transmission Date: 20250716
  Serious: No
  Sender: MYLAN
  Company Number: US-MYLANLABS-2025M1038692

PATIENT
  Age: 83 Year
  Sex: Female
  Weight: 51.7 kg

DRUGS (5)
  1. LATANOPROST [Suspect]
     Active Substance: LATANOPROST
     Indication: Eye inflammation
  2. LATANOPROST [Suspect]
     Active Substance: LATANOPROST
     Indication: Intraocular pressure increased
  3. BRIMONIDINE [Suspect]
     Active Substance: BRIMONIDINE TARTRATE
     Indication: Eye inflammation
  4. DORZOLAMIDE [Suspect]
     Active Substance: DORZOLAMIDE
     Indication: Eye inflammation
  5. KETOROLAC [Suspect]
     Active Substance: KETOROLAC TROMETHAMINE
     Indication: Eye inflammation
     Dosage: UNK, QID (IN HER RIGHT EYE, FOUR TIMES A DAY)

REACTIONS (5)
  - Arthritis [Unknown]
  - Visual impairment [Unknown]
  - Headache [Not Recovered/Not Resolved]
  - Vision blurred [Not Recovered/Not Resolved]
  - Drug ineffective [Unknown]

NARRATIVE: CASE EVENT DATE: 20220301
